FAERS Safety Report 7898427-9 (Version None)
Quarter: 2011Q4

REPORT INFORMATION
  Report Type: 
  Country: None (occurrence: None)
  Receive Date: 20111103
  Receipt Date: 20111026
  Transmission Date: 20120403
  Serious: Yes (Other)
  Sender: FDA-Public Use
  Company Number: 1000025038

PATIENT
  Age: 28 Year
  Sex: Female

DRUGS (1)
  1. FOSFOMYCIN(FOSFOMYCIN TROMETAMOL)(3 GRAM, GRANULATE) [Suspect]
     Indication: CYSTITIS
     Dosage: (6 GM,ONCE),ORAL
     Route: 048
     Dates: start: 20111017, end: 20111017

REACTIONS (4)
  - DIARRHOEA [None]
  - ABDOMINAL PAIN [None]
  - MEDICATION ERROR [None]
  - VOMITING [None]
